FAERS Safety Report 18331482 (Version 6)
Quarter: 2021Q3

REPORT INFORMATION
  Report Type: Report from Study
  Country: US (occurrence: US)
  Receive Date: 20200930
  Receipt Date: 20210714
  Transmission Date: 20211014
  Serious: No
  Sender: FDA-Public Use
  Company Number: NVSC2020US263745

PATIENT
  Age: 66 Year
  Sex: Male

DRUGS (6)
  1. LIPITOR [Concomitant]
     Active Substance: ATORVASTATIN CALCIUM
     Indication: PRODUCT USED FOR UNKNOWN INDICATION
     Dosage: UNK
     Route: 065
  2. ENTRESTO [Suspect]
     Active Substance: SACUBITRIL\VALSARTAN
     Indication: CARDIAC DISORDER
     Dosage: 100 MG, BID (49/51 MG) (FOR 4 MONTHS)
     Route: 048
     Dates: start: 202004
  3. ENTRESTO [Suspect]
     Active Substance: SACUBITRIL\VALSARTAN
     Indication: ATRIAL FIBRILLATION
     Dosage: 100 MG, BID (49/51 MG)
     Route: 048
  4. CARVEDILOL. [Concomitant]
     Active Substance: CARVEDILOL
     Indication: PRODUCT USED FOR UNKNOWN INDICATION
     Dosage: UNK
     Route: 065
  5. ENTRESTO [Suspect]
     Active Substance: SACUBITRIL\VALSARTAN
     Route: 048
  6. WARFARIN [Concomitant]
     Active Substance: WARFARIN
     Indication: PRODUCT USED FOR UNKNOWN INDICATION
     Dosage: UNK
     Route: 065

REACTIONS (5)
  - Drug ineffective [Unknown]
  - Ejection fraction decreased [Unknown]
  - Product use in unapproved indication [Unknown]
  - Dyspnoea [Unknown]
  - Product dose omission issue [Recovered/Resolved]

NARRATIVE: CASE EVENT DATE: 202004
